FAERS Safety Report 8862033 (Version 1)
Quarter: 2012Q4

REPORT INFORMATION
  Report Type: 
  Country: US (occurrence: US)
  Receive Date: 20121025
  Receipt Date: 20121025
  Transmission Date: 20130627
  Serious: No
  Sender: FDA-Public Use
  Company Number: US-B.I. PHARMACEUTICALS,INC./RIDGEFIELD-2011-BP-12660BP

PATIENT
  Sex: Female

DRUGS (17)
  1. PRADAXA [Suspect]
     Indication: ATRIAL FIBRILLATION
     Dosage: 300 mg
     Route: 048
     Dates: start: 20110316
  2. PRADAXA [Suspect]
     Dosage: 150 mg
     Route: 048
     Dates: start: 2011
  3. OMEPRAZOLE [Concomitant]
     Indication: GASTRIC ULCER
  4. DOXAZOSIN [Concomitant]
     Indication: CARDIAC DISORDER
     Route: 048
  5. DOXAZOSIN [Concomitant]
     Indication: CARDIAC FAILURE CONGESTIVE
  6. LOSARTAN [Concomitant]
     Indication: CARDIAC DISORDER
     Route: 048
  7. LOSARTAN [Concomitant]
     Indication: CARDIAC FAILURE CONGESTIVE
  8. FUROSEMIDE [Concomitant]
     Indication: CARDIAC DISORDER
  9. POTASSIUM [Concomitant]
     Indication: CARDIAC DISORDER
     Route: 048
  10. POTASSIUM [Concomitant]
     Indication: CARDIAC FAILURE CONGESTIVE
  11. VERAPAMIL [Concomitant]
     Indication: CARDIAC DISORDER
     Route: 048
  12. VERAPAMIL [Concomitant]
     Indication: ATRIAL FIBRILLATION
  13. LEVOTHYROXINE [Concomitant]
     Indication: HYPOTHYROIDISM
     Route: 048
  14. PREMARIN [Concomitant]
     Indication: MENOPAUSE
     Route: 048
  15. PREMARIN [Concomitant]
     Indication: BLOOD OESTROGEN DECREASED
  16. LASIX [Concomitant]
     Indication: CARDIAC FAILURE CONGESTIVE
     Route: 048
  17. VICODIN [Concomitant]
     Indication: ARTHRITIS
     Route: 048

REACTIONS (3)
  - Dyspepsia [Not Recovered/Not Resolved]
  - Renal impairment [Not Recovered/Not Resolved]
  - Throat irritation [Not Recovered/Not Resolved]
